FAERS Safety Report 15553225 (Version 1)
Quarter: 2018Q4

REPORT INFORMATION
  Report Type: Spontaneous
  Country: JP (occurrence: JP)
  Receive Date: 20181026
  Receipt Date: 20181026
  Transmission Date: 20190205
  Serious: Yes (Other)
  Sender: FDA-Public Use
  Company Number: JP-TEVA-2018-JP-967955

PATIENT
  Age: 72 Year
  Sex: Female

DRUGS (6)
  1. RISEDRONATE SODIUM - BP [Suspect]
     Active Substance: RISEDRONATE SODIUM
     Indication: PRODUCT USED FOR UNKNOWN INDICATION
     Dosage: 75 MG, FREQUENCY WAS NOT SPECIFIED
     Route: 065
     Dates: start: 20181003
  2. TENELIA [Concomitant]
     Active Substance: TENELIGLIPTIN
     Route: 065
  3. MICARDIS [Concomitant]
     Active Substance: TELMISARTAN
     Route: 065
  4. PITAVASTATIN CALCIUM [Concomitant]
     Active Substance: PITAVASTATIN CALCIUM
     Route: 065
  5. TAKELDA [Concomitant]
     Active Substance: ASPIRIN\LANSOPRAZOLE
     Route: 065
  6. EPADEL [Concomitant]
     Active Substance: ICOSAPENT
     Route: 065

REACTIONS (7)
  - Feeling cold [Recovered/Resolved]
  - Chest pain [Recovered/Resolved]
  - Hypothermia [Not Recovered/Not Resolved]
  - Back pain [Recovered/Resolved]
  - C-reactive protein increased [Unknown]
  - Pain [Recovering/Resolving]
  - Pyrexia [Recovered/Resolved]

NARRATIVE: CASE EVENT DATE: 201810
